FAERS Safety Report 9363121 (Version 2)
Quarter: 2013Q3

REPORT INFORMATION
  Report Type: Spontaneous
  Country: US (occurrence: US)
  Receive Date: 20130624
  Receipt Date: 20130814
  Transmission Date: 20140515
  Serious: Yes (Life-Threatening)
  Sender: FDA-Public Use
  Company Number: US-PFIZER INC-2013187163

PATIENT
  Age: 33 Year
  Sex: 0

DRUGS (2)
  1. CHANTIX [Suspect]
     Dosage: STARTING MONTH BOX, AS DIRECTED
     Route: 048
  2. CHANTIX [Suspect]
     Dosage: 1 MG, 2X/DAY
     Route: 048

REACTIONS (1)
  - Hypersensitivity [Unknown]
